FAERS Safety Report 7618409-1 (Version None)
Quarter: 2011Q3

REPORT INFORMATION
  Report Type: 
  Country: None (occurrence: None)
  Receive Date: 20110718
  Receipt Date: 20110711
  Transmission Date: 20111222
  Serious: Yes (Death, Other)
  Sender: FDA-Public Use
  Company Number: KR-ROCHE-789500

PATIENT

DRUGS (6)
  1. ONDANSETRON [Concomitant]
     Route: 042
  2. DOCETAXEL [Suspect]
     Indication: GASTRIC CANCER
     Dosage: 4 LEVELS OF DOSES IN TWO PHASES, FREQUENCY: ON DAY 1 OF EACH CYCLE, FORM: INFUSION
     Route: 042
  3. CISPLATIN [Suspect]
     Indication: GASTRIC CANCER
     Dosage: 4 LEVELS OF DOSES IN TWO PHASES, FREQUENCY: ON DAY 1 OF EACH CYCLE, FORM: INFUSION
     Route: 042
  4. DEXAMETHASONE [Concomitant]
     Dosage: FORM: ORAL, INDICATION: HYPERSENSITIVITY PROPHYLAXIS, FOR 3 DAYS BEFORE DOCETAXEL INFUSION.
     Route: 050
  5. DEXAMETHASONE [Concomitant]
     Dosage: FORM: INTRAVENOUS
     Route: 050
  6. CAPECITABINE [Suspect]
     Indication: GASTRIC CANCER
     Dosage: FOUR LEVELS OF DOSES IN TWO PHASES, FREQUENCY: 14 DAYS FOLLOWED BY 7 DAY REST.
     Route: 048

REACTIONS (14)
  - PALMAR-PLANTAR ERYTHRODYSAESTHESIA SYNDROME [None]
  - FEBRILE NEUTROPENIA [None]
  - LEUKOPENIA [None]
  - NAUSEA [None]
  - NEUTROPENIA [None]
  - THROMBOCYTOPENIA [None]
  - ABDOMINAL PAIN [None]
  - ASTHENIA [None]
  - CONSTIPATION [None]
  - VOMITING [None]
  - DIARRHOEA [None]
  - ANAEMIA [None]
  - STOMATITIS [None]
  - NEUROPATHY PERIPHERAL [None]
